FAERS Safety Report 10753404 (Version 2)
Quarter: 2015Q1

REPORT INFORMATION
  Report Type: Spontaneous
  Country: US (occurrence: US)
  Receive Date: 20150131
  Receipt Date: 20150319
  Transmission Date: 20150721
  Serious: No
  Sender: FDA-Public Use
  Company Number: US-B.I. PHARMACEUTICALS,INC./RIDGEFIELD-2015-BI-03613BP

PATIENT

DRUGS (1)
  1. TELMISARTAN + HYDROCHLOROTHIAZIDE [Suspect]
     Active Substance: HYDROCHLOROTHIAZIDE\TELMISARTAN
     Indication: PRODUCT USED FOR UNKNOWN INDICATION
     Dosage: DOSE PER APPLICATION: 40/12.5 MG
     Route: 065
     Dates: start: 2012

REACTIONS (5)
  - Blood pressure increased [Unknown]
  - Dizziness [Unknown]
  - Blood pressure decreased [Unknown]
  - Asthenia [Unknown]
  - Product quality issue [Unknown]
